FAERS Safety Report 8033898-9 (Version None)
Quarter: 2012Q1

REPORT INFORMATION
  Report Type: 
  Country: None (occurrence: None)
  Receive Date: 20120110
  Receipt Date: 20120102
  Transmission Date: 20120608
  Serious: Yes (Hospitalization)
  Sender: FDA-Public Use
  Company Number: US-ELI_LILLY_AND_COMPANY-US201111001993

PATIENT
  Age: 40 Year
  Sex: Male
  Weight: 68.027 kg

DRUGS (9)
  1. ZYPREXA [Suspect]
     Indication: AGITATION
     Dosage: 5 MG, QD
     Route: 048
     Dates: end: 20111102
  2. ULTRAM [Concomitant]
  3. TRAZODONE HCL [Concomitant]
  4. ATIVAN [Concomitant]
  5. DILAUDID                                /USA/ [Concomitant]
  6. CYMBALTA [Suspect]
     Indication: MAJOR DEPRESSION
     Dosage: 30 MG, QD
  7. CYMBALTA [Suspect]
     Dosage: 60 MG, QD
     Route: 048
     Dates: end: 20111102
  8. ZYPREXA [Suspect]
     Dosage: 10 MG, QD
     Route: 048
  9. RESTORIL [Concomitant]

REACTIONS (3)
  - DEPRESSION [None]
  - OFF LABEL USE [None]
  - RASH [None]
